FAERS Safety Report 10381949 (Version 1)
Quarter: 2014Q3

REPORT INFORMATION
  Report Type: Report from Study
  Country: US (occurrence: US)
  Receive Date: 20140813
  Receipt Date: 20140813
  Transmission Date: 20150326
  Serious: Yes (Other)
  Sender: FDA-Public Use
  Company Number: US-BRISTOL-MYERS SQUIBB COMPANY-21279476

PATIENT
  Age: 59 Year
  Sex: Male

DRUGS (1)
  1. ORENCIA [Suspect]
     Active Substance: ABATACEPT
     Dosage: LAST INFUSION : 30-JUL-2014
     Route: 042

REACTIONS (5)
  - Cardiac disorder [Unknown]
  - Chest pain [Unknown]
  - Nodule [Unknown]
  - Transient ischaemic attack [Unknown]
  - Pulmonary mass [Unknown]
